FAERS Safety Report 9451520 (Version 1)
Quarter: 2013Q3

REPORT INFORMATION
  Report Type: Spontaneous
  Country: CH (occurrence: CH)
  Receive Date: 20130811
  Receipt Date: 20130811
  Transmission Date: 20140515
  Serious: Yes (Hospitalization)
  Sender: FDA-Public Use
  Company Number: CH-ELI_LILLY_AND_COMPANY-CH201308000052

PATIENT
  Age: 49 Year
  Sex: Female

DRUGS (7)
  1. FLUCTINE [Suspect]
     Dosage: 20 MG, QD
     Route: 048
     Dates: end: 20130526
  2. SAROTEN [Suspect]
     Dosage: 50 MG, QD
     Route: 048
     Dates: end: 20130526
  3. TRANXILIUM [Suspect]
     Dosage: 20 MG, UNK
     Route: 048
     Dates: end: 20130526
  4. ABILIFY [Suspect]
     Dosage: 10 MG, QD
     Route: 048
     Dates: end: 20130526
  5. DEPAKINE [Concomitant]
     Dosage: 1000 MG, QD
     Route: 048
  6. EUTHYROX [Concomitant]
     Dosage: .125 MG, QD
     Route: 048
  7. QUETIAPINE FUMARATE [Concomitant]
     Dosage: 300 MG, QD
     Route: 048

REACTIONS (7)
  - Hallucination, visual [Recovered/Resolved]
  - Amnesia [Recovered/Resolved]
  - Speech disorder [Recovered/Resolved]
  - Confusional state [Recovered/Resolved]
  - Gait disturbance [Recovered/Resolved]
  - Aphasia [Recovered/Resolved]
  - Urinary incontinence [Unknown]
